FAERS Safety Report 21606419 (Version 3)
Quarter: 2025Q4

REPORT INFORMATION
  Report Type: Report from Study
  Country: US (occurrence: US)
  Receive Date: 20221117
  Receipt Date: 20251107
  Transmission Date: 20260119
  Serious: Yes (Other)
  Sender: ABBVIE
  Company Number: US-ABBVIE-4176251

PATIENT
  Age: 41 Year
  Sex: Female

DRUGS (2)
  1. SKYRIZI [Suspect]
     Active Substance: RISANKIZUMAB-RZAA
     Indication: Crohn^s disease
     Route: 058
     Dates: start: 20221003
  2. SKYRIZI [Suspect]
     Active Substance: RISANKIZUMAB-RZAA
     Indication: Crohn^s disease
     Dosage: STOPE DATE: 2022
     Route: 041
     Dates: start: 20220710

REACTIONS (27)
  - Surgery [Unknown]
  - Abdominal pain [Not Recovered/Not Resolved]
  - Rash [Not Recovered/Not Resolved]
  - Hepatomegaly [Unknown]
  - Lymphadenopathy [Unknown]
  - Laboratory test abnormal [Not Recovered/Not Resolved]
  - Abdominal distension [Unknown]
  - Angina pectoris [Not Recovered/Not Resolved]
  - Chills [Unknown]
  - Hepatic steatosis [Not Recovered/Not Resolved]
  - Synovial cyst [Not Recovered/Not Resolved]
  - Pain [Not Recovered/Not Resolved]
  - Platelet count increased [Unknown]
  - Gastrointestinal disorder [Not Recovered/Not Resolved]
  - Serum ferritin increased [Unknown]
  - Stoma creation [Unknown]
  - Unevaluable event [Unknown]
  - Fistula [Unknown]
  - Pain [Unknown]
  - Neutrophil count increased [Unknown]
  - Vitamin D decreased [Unknown]
  - Pulmonary embolism [Unknown]
  - White blood cell count increased [Unknown]
  - Device issue [Unknown]
  - Gastric cancer [Unknown]
  - Diarrhoea [Unknown]
  - Therapeutic response unexpected [Unknown]

NARRATIVE: CASE EVENT DATE: 20220101
